FAERS Safety Report 10256842 (Version 7)
Quarter: 2015Q3

REPORT INFORMATION
  Report Type: Spontaneous
  Country: US (occurrence: US)
  Receive Date: 20140625
  Receipt Date: 20150727
  Transmission Date: 20151125
  Serious: Yes (Death, Other)
  Sender: FDA-Public Use
  Company Number: US-ROCHE-1303287

PATIENT
  Age: 94 Year
  Sex: Female

DRUGS (13)
  1. ERIVEDGE [Suspect]
     Active Substance: VISMODEGIB
     Indication: BASAL CELL CARCINOMA
     Route: 048
     Dates: start: 20130620, end: 20140116
  2. SEROQUEL [Concomitant]
     Active Substance: QUETIAPINE FUMARATE
  3. OXYBUTYNIN [Concomitant]
     Active Substance: OXYBUTYNIN
  4. ERIVEDGE [Suspect]
     Active Substance: VISMODEGIB
     Route: 048
     Dates: start: 20140702
  5. DRAMAMINE [Concomitant]
     Active Substance: DIMENHYDRINATE
     Indication: ANALGESIC THERAPY
  6. LISINOPRIL. [Concomitant]
     Active Substance: LISINOPRIL
  7. IBUPROFEN. [Concomitant]
     Active Substance: IBUPROFEN
  8. LASIX [Concomitant]
     Active Substance: FUROSEMIDE
  9. PROZAC [Concomitant]
     Active Substance: FLUOXETINE HYDROCHLORIDE
  10. MELATONIN [Concomitant]
     Active Substance: MELATONIN
  11. VITAMIN B12 [Concomitant]
     Active Substance: CYANOCOBALAMIN
  12. BABY ASPIRIN [Concomitant]
     Active Substance: ASPIRIN
  13. ERIVEDGE [Suspect]
     Active Substance: VISMODEGIB
     Route: 048
     Dates: start: 20140704

REACTIONS (15)
  - Choking sensation [Recovered/Resolved]
  - Death [Fatal]
  - Asthenia [Not Recovered/Not Resolved]
  - Urine odour abnormal [Recovered/Resolved]
  - Epistaxis [Not Recovered/Not Resolved]
  - Respiratory tract congestion [Unknown]
  - Chromaturia [Recovered/Resolved]
  - Fatigue [Unknown]
  - Dysphagia [Recovering/Resolving]
  - Neoplasm malignant [Not Recovered/Not Resolved]
  - Decreased appetite [Recovered/Resolved]
  - Diarrhoea [Unknown]
  - Alopecia [Unknown]
  - Cough [Recovering/Resolving]
  - Otorrhoea [Unknown]

NARRATIVE: CASE EVENT DATE: 20140116
